FAERS Safety Report 9155245 (Version 4)
Quarter: 2013Q2

REPORT INFORMATION
  Report Type: Report from Study
  Country: DK (occurrence: JP)
  Receive Date: 20130311
  Receipt Date: 20130520
  Transmission Date: 20140414
  Serious: Yes (Death)
  Sender: FDA-Public Use
  Company Number: JP-FRI-1000043171

PATIENT
  Age: 79 Year
  Sex: Male
  Weight: 39 kg

DRUGS (10)
  1. ESCITALOPRAM [Suspect]
     Indication: DEPRESSION
     Dosage: 10 MG
     Route: 048
     Dates: start: 20130107, end: 20130108
  2. ESCITALOPRAM [Suspect]
     Dosage: 20 MG
     Route: 048
     Dates: start: 20130109, end: 20130125
  3. ESCITALOPRAM [Suspect]
     Dosage: 10 MG
     Route: 048
     Dates: start: 20130126, end: 20130130
  4. SENIRAN [Suspect]
     Indication: ANXIETY
     Dosage: 6 MG
     Route: 048
     Dates: start: 20130108, end: 20130209
  5. REFLEX [Suspect]
     Indication: DEPRESSION
     Dosage: 15MG
     Route: 048
     Dates: start: 20130115, end: 20130118
  6. REFLEX [Suspect]
     Dosage: 30MG
     Route: 048
     Dates: start: 20130119, end: 20130125
  7. REFLEX [Suspect]
     Dosage: 45MG
     Route: 048
     Dates: start: 20130126, end: 20130129
  8. REFLEX [Suspect]
     Dosage: 15MG
     Route: 048
     Dates: start: 20130130, end: 20130130
  9. AMARYL [Suspect]
     Indication: DIABETES MELLITUS
     Dosage: 1MG
     Route: 048
     Dates: end: 20130209
  10. ROZEREM [Concomitant]
     Indication: DEPRESSION
     Dosage: 8MG
     Route: 048
     Dates: start: 20130107, end: 20130209

REACTIONS (2)
  - Sudden death [Fatal]
  - Delirium [Not Recovered/Not Resolved]
